FAERS Safety Report 13003913 (Version 1)
Quarter: 2016Q4

REPORT INFORMATION
  Report Type: Report from Study
  Country: US (occurrence: US)
  Receive Date: 20161206
  Receipt Date: 20161206
  Transmission Date: 20170207
  Serious: Yes (Other)
  Sender: FDA-Public Use
  Company Number: US-GILEAD-2016-0247287

PATIENT
  Age: 59 Year
  Sex: Male

DRUGS (1)
  1. RANOLAZINE [Suspect]
     Active Substance: RANOLAZINE
     Indication: ANGINA PECTORIS
     Dosage: 500 MG, BID
     Route: 048
     Dates: start: 2013

REACTIONS (3)
  - Angioplasty [Unknown]
  - Vision blurred [Unknown]
  - Stent placement [Unknown]

NARRATIVE: CASE EVENT DATE: 2016
